FAERS Safety Report 15464893 (Version 3)
Quarter: 2019Q1

REPORT INFORMATION
  Report Type: Report from Study
  Country: US (occurrence: US)
  Receive Date: 20181004
  Receipt Date: 20190131
  Transmission Date: 20190417
  Serious: Yes (Death, Hospitalization, Other)
  Sender: FDA-Public Use
  Company Number: US-BAUSCH-BL-2018-027225

PATIENT
  Age: 75 Year
  Sex: Male

DRUGS (1)
  1. MESTINON [Suspect]
     Active Substance: PYRIDOSTIGMINE BROMIDE
     Indication: MYASTHENIA GRAVIS
     Route: 048
     Dates: start: 20170803, end: 20180929

REACTIONS (5)
  - Brain hypoxia [Unknown]
  - Blood pressure decreased [Unknown]
  - Intestinal perforation [Fatal]
  - Therapy cessation [Not Recovered/Not Resolved]
  - Cardiac arrest [Unknown]

NARRATIVE: CASE EVENT DATE: 20180929
